FAERS Safety Report 8591112-X (Version None)
Quarter: 2012Q3

REPORT INFORMATION
  Report Type: 
  Country: None (occurrence: None)
  Receive Date: 20120813
  Receipt Date: 20120730
  Transmission Date: 20120928
  Serious: Yes (Disabling, Other)
  Sender: FDA-Public Use
  Company Number: CHPA2012US017151

PATIENT
  Sex: Female

DRUGS (5)
  1. ZEGERID [Concomitant]
  2. STOOL SOFTENER [Concomitant]
  3. ZANTAC [Concomitant]
  4. MAALOX ANTACID/ANTIGAS MAX QDTABS ASST [Suspect]
     Indication: GASTROOESOPHAGEAL REFLUX DISEASE
     Dosage: 2 DF, QHS PRN
     Route: 048
  5. DRUG THERAPY NOS [Concomitant]

REACTIONS (6)
  - NERVE COMPRESSION [None]
  - HYPERTENSION [None]
  - THYROID DISORDER [None]
  - MOBILITY DECREASED [None]
  - HYPOAESTHESIA [None]
  - OFF LABEL USE [None]
